FAERS Safety Report 6122093-6 (Version None)
Quarter: 2009Q1

REPORT INFORMATION
  Report Type: 
  Country: None (occurrence: None)
  Receive Date: 20090316
  Receipt Date: 20090316
  Transmission Date: 20090719
  Serious: Yes (Hospitalization)
  Sender: FDA-Public Use
  Company Number: None

PATIENT
  Age: 55 Year
  Sex: Female
  Weight: 76 kg

DRUGS (7)
  1. TEMODAR [Suspect]
     Indication: GLIOBLASTOMA
     Dosage: 280MG PO X 5 DAYS Q28
     Route: 048
     Dates: start: 20081216, end: 20090215
  2. TOPOTECAN 1.25MG/M2 ON DAYS 2 -6 OF 28 DAY CYCLE [Suspect]
     Indication: GLIOBLASTOMA
     Dosage: 4.25 MG PO X5 DAYS Q28
     Route: 048
     Dates: start: 20081217, end: 20090216
  3. PROTONIX [Concomitant]
  4. SYNTHROID [Concomitant]
  5. DEXAMETHASONE [Concomitant]
  6. DILANTIN [Concomitant]
  7. SENOKOT [Concomitant]

REACTIONS (5)
  - COUGH [None]
  - HAEMOGLOBIN DECREASED [None]
  - NASOPHARYNGITIS [None]
  - PANCYTOPENIA [None]
  - THROMBOCYTOPENIA [None]
